FAERS Safety Report 8259251-0 (Version None)
Quarter: 2012Q2

REPORT INFORMATION
  Report Type: 
  Country: None (occurrence: None)
  Receive Date: 20120404
  Receipt Date: 20120323
  Transmission Date: 20120825
  Serious: Yes (Hospitalization)
  Sender: FDA-Public Use
  Company Number: FR-TEVA-330967ISR

PATIENT
  Sex: Male

DRUGS (4)
  1. DOXORUBICIN HCL [Suspect]
     Indication: MULTIPLE MYELOMA
     Route: 041
     Dates: start: 20120118, end: 20120118
  2. CYCLOPHOSPHAMIDE [Concomitant]
     Indication: MULTIPLE MYELOMA
     Route: 042
     Dates: start: 20120118, end: 20120118
  3. PREDNISONE [Concomitant]
     Indication: MULTIPLE MYELOMA
     Dates: start: 20120118, end: 20120118
  4. VINCRISTINE [Concomitant]
     Indication: MULTIPLE MYELOMA
     Route: 042
     Dates: start: 20120118, end: 20120118

REACTIONS (4)
  - HYPERTENSION [None]
  - BACK PAIN [None]
  - TACHYCARDIA [None]
  - HYPERHIDROSIS [None]
